FAERS Safety Report 21976332 (Version 1)
Quarter: 2023Q1

REPORT INFORMATION
  Report Type: Spontaneous
  Country: FR (occurrence: FR)
  Receive Date: 20230210
  Receipt Date: 20230210
  Transmission Date: 20230418
  Serious: Yes (Other)
  Sender: FDA-Public Use
  Company Number: FR-AFSSAPS-AVNT2023000089

PATIENT
  Age: 76 Year
  Sex: Male

DRUGS (3)
  1. ACETAMINOPHEN [Suspect]
     Active Substance: ACETAMINOPHEN
     Indication: Product used for unknown indication
     Dosage: 6 CPS / D (1950MG PARACETAMOL)
     Route: 048
     Dates: start: 201505
  2. TRAMADOL [Suspect]
     Active Substance: TRAMADOL
     Indication: Product used for unknown indication
     Dosage: 6 CPS / DAY (225 MG TRAMADOL)
     Route: 048
     Dates: start: 201505
  3. LAMALINE (ACETAMINOPHEN\CAFFEINE\OPIUM) [Suspect]
     Active Substance: ACETAMINOPHEN\CAFFEINE\OPIUM
     Indication: Product used for unknown indication
     Dosage: 6 CAPSULES / DAY (1800MG PARACETAMOL)(60 MG OPIUM)(180 MG CAFFEINE)
     Route: 048
     Dates: start: 201310

REACTIONS (1)
  - Drug use disorder [Not Recovered/Not Resolved]
